FAERS Safety Report 4716824-7 (Version None)
Quarter: 2005Q3

REPORT INFORMATION
  Report Type: 
  Country: None (occurrence: None)
  Receive Date: 20050714
  Receipt Date: 20050630
  Transmission Date: 20060218
  Serious: Yes (Other)
  Sender: FDA-Public Use
  Company Number: 215140

PATIENT
  Age: 69 Year
  Sex: Female

DRUGS (9)
  1. RITUXAN [Suspect]
     Indication: NON-HODGKIN'S LYMPHOMA
     Dosage: 600 MG, 1/MONTH, INTRAVENOUS
     Route: 042
     Dates: start: 20011012, end: 20020108
  2. PARAPLATIN [Suspect]
     Indication: NON-HODGKIN'S LYMPHOMA
     Dosage: 350 MG, INTRAVENOUS
     Route: 042
     Dates: start: 20011015, end: 20020111
  3. DECADRON [Suspect]
     Indication: NON-HODGKIN'S LYMPHOMA
     Dosage: 40 MG, INTRAVENOUS
     Route: 042
     Dates: start: 20011015, end: 20020111
  4. IRINOTECAN HCL [Suspect]
     Indication: NON-HODGKIN'S LYMPHOMA
     Dosage: 40 MG, INTRAVENOUS
     Route: 042
     Dates: start: 20011015, end: 20020111
  5. ETOPOSIDE [Suspect]
     Indication: NON-HODGKIN'S LYMPHOMA
     Dosage: 140 MG, INTRAVENOUS
     Route: 042
     Dates: start: 20011015, end: 20020111
  6. LOXONIN (LOXOPROFEN SODIUM) [Concomitant]
  7. RESTAMIN (CHLORPHENIRAMINE MALEATE) [Concomitant]
  8. DECADRON [Concomitant]
  9. G-CSF (FILGRASTIM) [Concomitant]

REACTIONS (3)
  - NEUTROPHIL PERCENTAGE DECREASED [None]
  - PYREXIA [None]
  - WHITE BLOOD CELL COUNT DECREASED [None]
